FAERS Safety Report 8545489-1 (Version None)
Quarter: 2012Q3

REPORT INFORMATION
  Report Type: 
  Country: None (occurrence: None)
  Receive Date: 20120727
  Receipt Date: 20111027
  Transmission Date: 20120928
  Serious: No
  Sender: FDA-Public Use
  Company Number: US-ASTRAZENECA-2011SE65119

PATIENT
  Age: 49 Year
  Sex: Female
  Weight: 77.1 kg

DRUGS (3)
  1. CYMBALTA [Concomitant]
  2. CETIRIZINE HCL [Concomitant]
     Indication: MULTIPLE ALLERGIES
  3. SEROQUEL XR [Suspect]
     Indication: DEPRESSION
     Route: 048
     Dates: start: 20100301

REACTIONS (2)
  - WEIGHT INCREASED [None]
  - HANGOVER [None]
